FAERS Safety Report 7961368-2 (Version None)
Quarter: 2011Q4

REPORT INFORMATION
  Report Type: 
  Country: None (occurrence: None)
  Receive Date: 20111207
  Receipt Date: 20111125
  Transmission Date: 20120403
  Serious: Yes (Hospitalization, Other)
  Sender: FDA-Public Use
  Company Number: DE-ELI_LILLY_AND_COMPANY-DE201111007840

PATIENT
  Age: 55 Year
  Sex: Female

DRUGS (8)
  1. TARCEVA [Concomitant]
  2. VITAMIN B-12 [Concomitant]
     Dosage: UNK
  3. ALIMTA [Suspect]
     Indication: BRONCHIAL CARCINOMA
     Dosage: UNK, UNKNOWN
     Route: 042
     Dates: start: 20090401, end: 20090601
  4. ALIMTA [Suspect]
     Dosage: UNK, UNKNOWN
     Route: 042
     Dates: start: 20100901, end: 20110101
  5. ALIMTA [Suspect]
     Dosage: UNK, UNKNOWN
     Dates: start: 20110801
  6. MANNITOL [Concomitant]
  7. MARCUMAR [Concomitant]
  8. CISPLATIN [Concomitant]

REACTIONS (25)
  - SKIN DISCOLOURATION [None]
  - ALOPECIA [None]
  - ABDOMINAL DISCOMFORT [None]
  - MUSCULAR WEAKNESS [None]
  - BLOOD URIC ACID INCREASED [None]
  - PRURITUS [None]
  - RED BLOOD CELL COUNT DECREASED [None]
  - FATIGUE [None]
  - ERYTHEMA [None]
  - WEIGHT FLUCTUATION [None]
  - AGGRESSION [None]
  - NEUROPATHY PERIPHERAL [None]
  - RENAL FAILURE [None]
  - PULMONARY FIBROSIS [None]
  - DIZZINESS [None]
  - NAUSEA [None]
  - HYPERHIDROSIS [None]
  - NEOPLASM PROGRESSION [None]
  - BLOOD COUNT ABNORMAL [None]
  - COUGH [None]
  - PLATELET COUNT DECREASED [None]
  - PNEUMONIA [None]
  - SKIN MASS [None]
  - WHITE BLOOD CELL COUNT DECREASED [None]
  - DYSPNOEA [None]
